FAERS Safety Report 9393169 (Version 4)
Quarter: 2013Q3

REPORT INFORMATION
  Report Type: Spontaneous
  Country: JP (occurrence: JP)
  Receive Date: 20130710
  Receipt Date: 20130815
  Transmission Date: 20140515
  Serious: Yes (Death, Life-Threatening)
  Sender: FDA-Public Use
  Company Number: JP-B.I. PHARMACEUTICALS,INC./RIDGEFIELD-2013-BI-19547NB

PATIENT
  Age: 86 Year
  Sex: Female
  Weight: 52.8 kg

DRUGS (9)
  1. TRAZENTA [Suspect]
     Indication: TYPE 2 DIABETES MELLITUS
     Dosage: 5 MG
     Route: 048
     Dates: start: 20130628, end: 20130630
  2. EUGLUCON [Suspect]
     Indication: TYPE 2 DIABETES MELLITUS
     Route: 048
  3. SEIBULE [Concomitant]
     Indication: TYPE 2 DIABETES MELLITUS
     Dosage: 150 MG
     Route: 048
     Dates: start: 20120914, end: 20130630
  4. MAINTATE [Concomitant]
     Indication: CARDIAC FAILURE
     Dosage: 0.625 MG
     Route: 048
     Dates: start: 20120813, end: 20130630
  5. LANIRAPID [Concomitant]
     Indication: CARDIAC FAILURE
     Dosage: 0.05 MG
     Route: 048
     Dates: start: 20120813, end: 20130630
  6. BLOPRESS [Concomitant]
     Indication: HYPERTENSION
     Dosage: 8 MG
     Route: 048
     Dates: start: 20120813, end: 20130630
  7. AMLODIPINE [Concomitant]
     Indication: HYPERTENSION
     Dosage: 5 MG
     Route: 048
     Dates: start: 20120813, end: 20130630
  8. FEBURIC [Concomitant]
     Indication: RENAL FAILURE
     Dosage: 10 MG
     Route: 048
     Dates: start: 20120813, end: 20130630
  9. FLUITRAN [Concomitant]
     Indication: RENAL FAILURE
     Dosage: 0.5 MG
     Route: 048
     Dates: start: 20120813, end: 20130630

REACTIONS (1)
  - Hypoglycaemic encephalopathy [Fatal]
